FAERS Safety Report 16971568 (Version 1)
Quarter: 2019Q4

REPORT INFORMATION
  Report Type: Spontaneous
  Country: GB (occurrence: GB)
  Receive Date: 20191029
  Receipt Date: 20191029
  Transmission Date: 20200122
  Serious: Yes (Other)
  Sender: FDA-Public Use
  Company Number: GB-MYLANLABS-2019M1101985

PATIENT
  Age: 17 Year
  Sex: Female

DRUGS (4)
  1. LAMOTRIGINE. [Suspect]
     Active Substance: LAMOTRIGINE
     Indication: DEPRESSIVE SYMPTOM
     Dosage: 25MG FOR 2 WEEKS THEN INCREASED TO 50MG
     Route: 048
     Dates: start: 20190913, end: 201909
  2. OLANZAPINE. [Concomitant]
     Active Substance: OLANZAPINE
     Dosage: UNK
  3. LYMECYCLINE [Concomitant]
     Active Substance: LYMECYCLINE
     Dosage: UNK
  4. LAMOTRIGINE. [Suspect]
     Active Substance: LAMOTRIGINE
     Dosage: 50 MILLIGRAM (25MG FOR 2 WEEKS THEN INCREASED TO 50MG)
     Route: 048
     Dates: start: 201909, end: 20191005

REACTIONS (4)
  - Urticaria [Recovering/Resolving]
  - Pain [Unknown]
  - Blister [Unknown]
  - Lip swelling [Recovering/Resolving]

NARRATIVE: CASE EVENT DATE: 20191005
